FAERS Safety Report 21224060 (Version 1)
Quarter: 2022Q3

REPORT INFORMATION
  Report Type: Spontaneous
  Country: US (occurrence: US)
  Receive Date: 20220817
  Receipt Date: 20220817
  Transmission Date: 20221027
  Serious: No
  Sender: FDA-Public Use
  Company Number: US-SA-2022MK000070

PATIENT
  Sex: Female

DRUGS (3)
  1. AFREZZA [Suspect]
     Active Substance: INSULIN HUMAN
     Indication: Diabetes mellitus
     Dates: start: 20220330
  2. AFREZZA [Suspect]
     Active Substance: INSULIN HUMAN
     Dates: start: 20220330
  3. AFREZZA [Suspect]
     Active Substance: INSULIN HUMAN
     Dates: start: 20220330

REACTIONS (3)
  - Blood glucose increased [Unknown]
  - Product residue present [Unknown]
  - Product label confusion [Unknown]
